FAERS Safety Report 7213597-3 (Version None)
Quarter: 2010Q4

REPORT INFORMATION
  Report Type: 
  Country: None (occurrence: None)
  Receive Date: 20101126
  Receipt Date: 20080806
  Transmission Date: 20110411
  Serious: Yes (Hospitalization, Other)
  Sender: FDA-Public Use
  Company Number: CIP07001574

PATIENT
  Age: 73 Year
  Sex: Female

DRUGS (20)
  1. ACTONEL [Suspect]
     Indication: OSTEOPOROSIS
     Dosage: 30 MG, 1/ WEEK, ORAL
     Route: 048
     Dates: start: 20011119, end: 20030218
  2. ACTONEL [Suspect]
     Indication: OSTEOPOROSIS
     Dosage: 35 MG, 1 /WEEK, ORAL
     Route: 048
     Dates: start: 20030218, end: 20031201
  3. FOSAMAX [Suspect]
     Indication: OSTEOPOROSIS
     Dosage: 70 MG, 1 /WEEK
     Dates: start: 20031210, end: 20040907
  4. PREDNISONE TAB [Concomitant]
  5. METHOTREXATE [Concomitant]
  6. HYDROXYCHLOROQUINE SULFATE [Concomitant]
  7. ESTRADIOL [Concomitant]
  8. PROPOXACET-N (PARACETAMOL, DEXTROPROPOXYPHENE HYDROCHLORIDE) [Concomitant]
  9. RESTASIS (CICLOSPORIN) [Concomitant]
  10. LIPITOR [Concomitant]
  11. FLURIBEN (FLURBIPROFEN SODIUM) [Concomitant]
  12. TRIMOX /00086101/ (TRIMETHOPRIM, SULFAMETHOXAZOLE) [Concomitant]
  13. ESTRATEST H.S. [Concomitant]
  14. DILTIA XT (DILTIAZEM HYDROCHLORIDE) [Concomitant]
  15. PENICILLIN VK /00001802/ (PHENOXYMETHYLPENICILLIN POTASSIUM) [Concomitant]
  16. APAP CODEINE (CODEINE PHOSPHATE, PARACETAMOL) [Concomitant]
  17. OXYCODONE AND ACETAMINOPHEN [Concomitant]
  18. FOLIC ACID [Concomitant]
  19. MISOPROSTOL [Concomitant]
  20. LISINOPRIL [Concomitant]

REACTIONS (44)
  - ABDOMINAL PAIN [None]
  - AZOTAEMIA [None]
  - BONE DENSITY DECREASED [None]
  - CATHETER SITE PAIN [None]
  - DEHYDRATION [None]
  - DEVICE RELATED INFECTION [None]
  - DIARRHOEA [None]
  - EXOSTOSIS [None]
  - FEELING OF BODY TEMPERATURE CHANGE [None]
  - FRACTURE MALUNION [None]
  - GLOSSITIS [None]
  - HYPOAESTHESIA FACIAL [None]
  - HYPOPHAGIA [None]
  - IMPAIRED HEALING [None]
  - JAW CYST [None]
  - JAW DISORDER [None]
  - JAW FRACTURE [None]
  - JOINT RANGE OF MOTION DECREASED [None]
  - MALNUTRITION [None]
  - MASTICATION DISORDER [None]
  - MYALGIA [None]
  - NERVE INJURY [None]
  - ORAL CANDIDIASIS [None]
  - OSTEOMYELITIS [None]
  - OSTEONECROSIS OF JAW [None]
  - PAIN [None]
  - PAIN IN JAW [None]
  - PARAESTHESIA ORAL [None]
  - PATHOLOGICAL FRACTURE [None]
  - POST PROCEDURAL DISCOMFORT [None]
  - POSTOPERATIVE ADHESION [None]
  - PURULENT DISCHARGE [None]
  - SLEEP DISORDER [None]
  - SOFT TISSUE DISORDER [None]
  - SPEECH DISORDER [None]
  - STAPHYLOCOCCAL OSTEOMYELITIS [None]
  - TOOTH ABSCESS [None]
  - TOOTH DISORDER [None]
  - TOOTH EXTRACTION [None]
  - TOOTH INFECTION [None]
  - TOOTHACHE [None]
  - VOMITING [None]
  - WEIGHT DECREASED [None]
  - WOUND DEHISCENCE [None]
